FAERS Safety Report 17062137 (Version 2)
Quarter: 2019Q4

REPORT INFORMATION
  Report Type: Spontaneous
  Country: FR (occurrence: FR)
  Receive Date: 20191122
  Receipt Date: 20191223
  Transmission Date: 20200122
  Serious: Yes (Other)
  Sender: FDA-Public Use
  Company Number: FR-ROCHE-2469256

PATIENT
  Age: 55 Year
  Sex: Female

DRUGS (1)
  1. ROACTEMRA [Suspect]
     Active Substance: TOCILIZUMAB
     Indication: STILL^S DISEASE
     Dosage: 20 MG/ML
     Route: 042
     Dates: start: 201810, end: 20190919

REACTIONS (1)
  - Cutaneous sarcoidosis [Recovered/Resolved]

NARRATIVE: CASE EVENT DATE: 2019
